FAERS Safety Report 15233404 (Version 2)
Quarter: 2018Q4

REPORT INFORMATION
  Report Type: Spontaneous
  Country: DE (occurrence: DE)
  Receive Date: 20180802
  Receipt Date: 20181105
  Transmission Date: 20190204
  Serious: Yes (Hospitalization)
  Sender: FDA-Public Use
  Company Number: DE-JNJFOC-20180729089

PATIENT
  Age: 70 Year
  Sex: Male
  Weight: 95 kg

DRUGS (13)
  1. MIRTA [Concomitant]
  2. SIMVASTATIN. [Concomitant]
     Active Substance: SIMVASTATIN
  3. DAIVOBET [Concomitant]
     Active Substance: BETAMETHASONE DIPROPIONATE\CALCIPOTRIENE
  4. METFORMIN [Concomitant]
     Active Substance: METFORMIN HYDROCHLORIDE
  5. KARISON [Concomitant]
     Route: 061
  6. DAIVONEX [Concomitant]
     Active Substance: CALCIPOTRIENE
     Route: 061
  7. AMLODIPINE [Concomitant]
     Active Substance: AMLODIPINE BESYLATE
  8. CANDESARTAN. [Concomitant]
     Active Substance: CANDESARTAN
  9. TREMFYA [Suspect]
     Active Substance: GUSELKUMAB
     Indication: PSORIASIS
     Route: 065
     Dates: start: 20180703, end: 20180720
  10. ACTRAPHANE [Concomitant]
     Active Substance: INSULIN HUMAN
  11. TAMSULOSIN [Concomitant]
     Active Substance: TAMSULOSIN
  12. TORASEMID [Concomitant]
     Active Substance: TORSEMIDE
  13. PANGROL 25000 [Concomitant]

REACTIONS (1)
  - Vasculitis [Not Recovered/Not Resolved]

NARRATIVE: CASE EVENT DATE: 20180713
